FAERS Safety Report 23572462 (Version 1)
Quarter: 2024Q1

REPORT INFORMATION
  Report Type: Spontaneous
  Country: US (occurrence: None)
  Receive Date: 20240227
  Receipt Date: 20240227
  Transmission Date: 20240410
  Serious: Yes (Other)
  Sender: FDA-Public Use
  Company Number: None

PATIENT
  Age: 62 Year
  Sex: Female
  Weight: 67.5 kg

DRUGS (2)
  1. RECLAST [Suspect]
     Active Substance: ZOLEDRONIC ACID
     Indication: Osteoporosis
     Dosage: OTHER FREQUENCY : ONCE A YEAR;?
     Route: 041
     Dates: start: 20240103, end: 20240226
  2. zzoledronic acid (RECLAST) Zoledronic acid (RECLAST) [Concomitant]
     Dates: start: 20240103, end: 20240226

REACTIONS (4)
  - Myalgia [None]
  - Bone pain [None]
  - Musculoskeletal discomfort [None]
  - Musculoskeletal discomfort [None]

NARRATIVE: CASE EVENT DATE: 20240105
